FAERS Safety Report 5750163-0 (Version None)
Quarter: 2008Q2

REPORT INFORMATION
  Report Type: 
  Country: None (occurrence: None)
  Receive Date: 20080527
  Receipt Date: 20080515
  Transmission Date: 20081010
  Serious: Yes (Disabling)
  Sender: FDA-Public Use
  Company Number: GB-PFIZER INC-2008042401

PATIENT
  Age: 58 Year
  Sex: Female

DRUGS (9)
  1. CHANTIX [Suspect]
     Indication: SMOKING CESSATION THERAPY
     Route: 048
  2. BECLOMETHASONE DIPROPIONATE [Concomitant]
     Indication: ASTHMA
     Route: 055
  3. ACETAMINOPHEN W/ CODEINE [Concomitant]
     Dosage: FREQ:AS NECESSARY
  4. DILTIAZEM [Concomitant]
     Indication: HYPERTENSION
     Route: 048
  5. INSULIN [Concomitant]
     Indication: DIABETES MELLITUS
  6. RAMIPRIL [Concomitant]
     Indication: HYPERTENSION
     Dosage: DAILY DOSE:2.5MG-FREQ:DAILY
     Route: 048
  7. ALBUTEROL [Concomitant]
     Indication: ASTHMA
     Route: 055
  8. SIMVASTATIN [Concomitant]
     Indication: HYPERCHOLESTEROLAEMIA
     Dosage: DAILY DOSE:40MG-FREQ:DAILY
     Route: 048
  9. TEMAZEPAM [Concomitant]
     Indication: SLEEP DISORDER
     Dosage: DAILY DOSE:20MG-FREQ:DAILY
     Route: 048

REACTIONS (4)
  - ABNORMAL BEHAVIOUR [None]
  - AMNESIA [None]
  - ANGER [None]
  - MOOD SWINGS [None]
